FAERS Safety Report 4362287-3 (Version None)
Quarter: 2004Q2

REPORT INFORMATION
  Report Type: 
  Country: None (occurrence: None)
  Receive Date: 20040520
  Receipt Date: 20040520
  Transmission Date: 20050107
  Serious: Yes (Hospitalization)
  Sender: FDA-Public Use
  Company Number: None

PATIENT
  Sex: Male
  Weight: 79.8331 kg

DRUGS (2)
  1. LISINOPRIL [Suspect]
     Dosage: 10 MG Q AM
  2. POTASSIUM CHLORIDE [Suspect]
     Dosage: 20 MEG QD

REACTIONS (3)
  - HYPERHIDROSIS [None]
  - HYPERKALAEMIA [None]
  - RENAL FAILURE [None]
